FAERS Safety Report 7545087-2 (Version None)
Quarter: 2011Q2

REPORT INFORMATION
  Report Type: 
  Country: None (occurrence: None)
  Receive Date: 20110610
  Receipt Date: 20110610
  Transmission Date: 20111010
  Serious: Yes (Other)
  Sender: FDA-Public Use
  Company Number: None

PATIENT
  Sex: Female
  Weight: 56.246 kg

DRUGS (1)
  1. ALENDRONATE SODIUM [Suspect]
     Indication: OSTEOPENIA
     Dosage: 70 MG 1 PER WEEK
     Dates: start: 20101229, end: 20110105

REACTIONS (3)
  - RASH PRURITIC [None]
  - DRUG ERUPTION [None]
  - RASH GENERALISED [None]
